FAERS Safety Report 18277629 (Version 9)
Quarter: 2025Q3

REPORT INFORMATION
  Report Type: Report from Study
  Country: US (occurrence: US)
  Receive Date: 20200917
  Receipt Date: 20250902
  Transmission Date: 20251021
  Serious: Yes (Hospitalization, Other)
  Sender: TAKEDA
  Company Number: US-SHIRE-US202030052

PATIENT
  Age: 35 Year
  Sex: Female
  Weight: 87 kg

DRUGS (39)
  1. HUMAN IMMUNOGLOBULIN G [Suspect]
     Active Substance: HUMAN IMMUNOGLOBULIN G
     Indication: Polymyositis
     Dosage: 70 GRAM, Q4WEEKS
  2. HUMAN IMMUNOGLOBULIN G [Suspect]
     Active Substance: HUMAN IMMUNOGLOBULIN G
     Indication: Immunodeficiency common variable
     Dosage: 70 GRAM, Q4WEEKS
     Dates: start: 20220330
  3. HUMAN IMMUNOGLOBULIN G [Suspect]
     Active Substance: HUMAN IMMUNOGLOBULIN G
     Dosage: 70 GRAM, Q4WEEKS
  4. HEPARIN [Concomitant]
     Active Substance: HEPARIN SODIUM
  5. DIPHENHYDRAMINE HYDROCHLORIDE [Concomitant]
     Active Substance: DIPHENHYDRAMINE HYDROCHLORIDE
  6. ONDANSETRON HYDROCHLORIDE [Concomitant]
     Active Substance: ONDANSETRON HYDROCHLORIDE
  7. AZATHIOPRINE [Concomitant]
     Active Substance: AZATHIOPRINE
  8. SLYND [Concomitant]
     Active Substance: DROSPIRENONE
  9. EPINEPHRINE [Concomitant]
     Active Substance: EPINEPHRINE
  10. SODIUM CHLORIDE [Concomitant]
     Active Substance: SODIUM CHLORIDE
  11. RIVASTIGMINE [Concomitant]
     Active Substance: RIVASTIGMINE
  12. IBUPROFEN [Concomitant]
     Active Substance: IBUPROFEN
  13. FLUTICASONE PROPIONATE [Concomitant]
     Active Substance: FLUTICASONE PROPIONATE
  14. PREDNISONE [Concomitant]
     Active Substance: PREDNISONE
  15. ACETAMINOPHEN [Concomitant]
     Active Substance: ACETAMINOPHEN
  16. FAMOTIDINE [Concomitant]
     Active Substance: FAMOTIDINE
  17. NAPROXEN [Concomitant]
     Active Substance: NAPROXEN
  18. SODIUM CHLORIDE [Concomitant]
     Active Substance: SODIUM CHLORIDE
  19. SOLU-MEDROL [Concomitant]
     Active Substance: METHYLPREDNISOLONE SODIUM SUCCINATE
  20. PATADAY [Concomitant]
     Active Substance: OLOPATADINE HYDROCHLORIDE
  21. CETIRIZINE HCL [Concomitant]
     Active Substance: CETIRIZINE HYDROCHLORIDE
  22. Lmx [Concomitant]
  23. IMURAN [Concomitant]
     Active Substance: AZATHIOPRINE
  24. FLONASE [Concomitant]
     Active Substance: FLUTICASONE PROPIONATE
  25. CETIRIZINE [Concomitant]
     Active Substance: CETIRIZINE HYDROCHLORIDE
  26. DIPHENHYDRAMINE [Concomitant]
     Active Substance: DIPHENHYDRAMINE
  27. EPIPEN [Concomitant]
     Active Substance: EPINEPHRINE
  28. ONDANSETRON [Concomitant]
     Active Substance: ONDANSETRON
  29. Echinacea angustifolia extract [Concomitant]
  30. HERBALS\HOMEOPATHICS\GOLDENSEAL [Concomitant]
     Active Substance: HERBALS\HOMEOPATHICS\GOLDENSEAL
  31. METOPROLOL SUCCINATE [Concomitant]
     Active Substance: METOPROLOL SUCCINATE
  32. CLARITIN [Concomitant]
     Active Substance: LORATADINE
  33. REFRESH TEARS [Concomitant]
     Active Substance: CARBOXYMETHYLCELLULOSE SODIUM
  34. FLUTICASONE [Concomitant]
     Active Substance: FLUTICASONE
  35. LEVOCETIRIZINE DIHYDROCHLORIDE [Concomitant]
     Active Substance: LEVOCETIRIZINE DIHYDROCHLORIDE
  36. MONTELUKAST SODIUM [Concomitant]
     Active Substance: MONTELUKAST SODIUM
  37. TRIAMCINOLONE ACETONIDE [Concomitant]
     Active Substance: TRIAMCINOLONE ACETONIDE
  38. TIZANIDINE HYDROCHLORIDE [Concomitant]
     Active Substance: TIZANIDINE HYDROCHLORIDE
  39. METFORMIN HYDROCHLORIDE [Concomitant]
     Active Substance: METFORMIN HYDROCHLORIDE

REACTIONS (16)
  - Leukaemia [Unknown]
  - Diabetes mellitus [Unknown]
  - Chest pain [Unknown]
  - Dehydration [Unknown]
  - Illness [Recovering/Resolving]
  - Gastroenteritis viral [Recovering/Resolving]
  - Papilloma viral infection [Unknown]
  - Toothache [Unknown]
  - Tooth infection [Unknown]
  - Tenderness [Unknown]
  - Respiratory tract infection [Unknown]
  - COVID-19 [Recovered/Resolved]
  - Abnormal behaviour [Unknown]
  - Sinusitis [Unknown]
  - Muscular weakness [Unknown]
  - Headache [Recovered/Resolved]

NARRATIVE: CASE EVENT DATE: 20220427
